FAERS Safety Report 8188630-5 (Version None)
Quarter: 2012Q1

REPORT INFORMATION
  Report Type: 
  Country: None (occurrence: None)
  Receive Date: 20120306
  Receipt Date: 20120227
  Transmission Date: 20120608
  Serious: Yes (Other)
  Sender: FDA-Public Use
  Company Number: US-ASTRAZENECA-2012SE03977

PATIENT
  Age: 54 Year
  Sex: Male

DRUGS (12)
  1. FLOMAX [Concomitant]
  2. PERCOCET [Concomitant]
  3. METHOTREXATE [Concomitant]
  4. FLEXERIL [Concomitant]
  5. REQUIP [Concomitant]
  6. ASPIRIN [Concomitant]
  7. VIMOVO [Suspect]
     Dosage: 500/20 MG
     Route: 048
     Dates: start: 20110101
  8. LISINOPRIL AND HYDROCHLOROTHIAZIDE [Concomitant]
  9. ENBREL [Concomitant]
  10. FENOFIBRATE [Concomitant]
  11. LOVAZA [Concomitant]
  12. FOLIC ACID [Concomitant]

REACTIONS (6)
  - VOMITING [None]
  - PANCREATITIS [None]
  - ABDOMINAL PAIN UPPER [None]
  - DRUG INEFFECTIVE [None]
  - DIVERTICULITIS [None]
  - GASTROOESOPHAGEAL REFLUX DISEASE [None]
